FAERS Safety Report 6818625-2 (Version None)
Quarter: 2010Q3

REPORT INFORMATION
  Report Type: 
  Country: None (occurrence: None)
  Receive Date: 20100706
  Receipt Date: 20090226
  Transmission Date: 20110219
  Serious: No
  Sender: FDA-Public Use
  Company Number: US-PFIZER INC-2009175937

PATIENT
  Sex: Male

DRUGS (3)
  1. ZITHROMAX [Suspect]
     Indication: EAR INFECTION
     Dosage: 500 MG, 1X/DAY
     Route: 048
     Dates: start: 20090217, end: 20090217
  2. ZITHROMAX [Suspect]
     Dosage: 250 MG, 1X/DAY
     Route: 048
     Dates: start: 20090218, end: 20090221
  3. TYLENOL [Concomitant]
     Dosage: UNK

REACTIONS (1)
  - TINNITUS [None]
